FAERS Safety Report 5070128-4 (Version None)
Quarter: 2006Q3

REPORT INFORMATION
  Report Type: 
  Country: None (occurrence: None)
  Receive Date: 20060802
  Receipt Date: 20060802
  Transmission Date: 20061208
  Serious: Yes (Other)
  Sender: FDA-Public Use
  Company Number: None

PATIENT
  Age: 71 Year
  Sex: Male
  Weight: 80.7 kg

DRUGS (2)
  1. ATORVASTATIN CALCIUM [Suspect]
     Dosage: Q DAY PTA
  2. GEMFIBROZIL [Suspect]
     Dosage: BID PTA

REACTIONS (5)
  - CROHN'S DISEASE [None]
  - DEHYDRATION [None]
  - DIARRHOEA [None]
  - RENAL FAILURE ACUTE [None]
  - RHABDOMYOLYSIS [None]
